FAERS Safety Report 21624427 (Version 1)
Quarter: 2022Q4

REPORT INFORMATION
  Report Type: Report from Study
  Country: US (occurrence: US)
  Receive Date: 20221121
  Receipt Date: 20221121
  Transmission Date: 20230113
  Serious: No
  Sender: FDA-Public Use
  Company Number: US-ABBVIE-4172700

PATIENT
  Sex: Female

DRUGS (2)
  1. ORIAHNN [Suspect]
     Active Substance: ELAGOLIX SODIUM\ESTRADIOL\NORETHINDRONE
     Indication: Product used for unknown indication
     Dosage: DOSE/FREQUENCY: TAKE 1 CAPSULE IN THE MORNING AM AND 1 EVENING CAPSULE IN THE PM AS DIRECTED ON P...
     Route: 048
  2. ORIAHNN [Suspect]
     Active Substance: ELAGOLIX SODIUM\ESTRADIOL\NORETHINDRONE
     Indication: Product used for unknown indication
     Dosage: DOSE/FREQUENCY: TAKE 1 CAPSULE IN THE MORNING AM AND 1 EVENING CAPSULE IN THE PM AS DIRECTED ON P...
     Route: 048

REACTIONS (3)
  - Asthenia [Unknown]
  - Blood iron decreased [Unknown]
  - Abnormal uterine bleeding [Unknown]
